FAERS Safety Report 8799351 (Version 1)
Quarter: 2012Q4

REPORT INFORMATION
  Report Type: 
  Country: AU (occurrence: AU)
  Receive Date: 20120920
  Receipt Date: 20120920
  Transmission Date: 20130627
  Serious: Yes (Other)
  Sender: FDA-Public Use
  Company Number: AU-BAXTER-2012BAX016914

PATIENT
  Age: 26 Year
  Sex: Male

DRUGS (1)
  1. TISSEEL FROZEN [Suspect]
     Indication: WOUND CLOSURE
     Route: 061

REACTIONS (3)
  - Infection [Recovered/Resolved]
  - Body temperature increased [Recovered/Resolved]
  - Post procedural infection [None]
